FAERS Safety Report 15241412 (Version 1)
Quarter: 2018Q3

REPORT INFORMATION
  Report Type: Spontaneous
  Country: US (occurrence: US)
  Receive Date: 20180711
  Receipt Date: 20180711
  Transmission Date: 20181010
  Serious: Yes (Life-Threatening)
  Sender: FDA-Public Use
  Company Number: None

PATIENT
  Age: 49 Year
  Sex: Male

DRUGS (1)
  1. CEFTRIAXONE. [Suspect]
     Active Substance: CEFTRIAXONE
     Indication: MENINGITIS
     Route: 042
     Dates: start: 20180511, end: 20180511

REACTIONS (5)
  - Drug prescribing error [None]
  - Rash [None]
  - Drug hypersensitivity [None]
  - Anaphylactic reaction [None]
  - Seizure [None]

NARRATIVE: CASE EVENT DATE: 20180511
